FAERS Safety Report 7633010-1 (Version None)
Quarter: 2011Q3

REPORT INFORMATION
  Report Type: 
  Country: None (occurrence: None)
  Receive Date: 20110701
  Receipt Date: 20110115
  Transmission Date: 20111222
  Serious: Yes (Hospitalization)
  Sender: FDA-Public Use
  Company Number: 7036374

PATIENT
  Age: 45 Year
  Sex: Male

DRUGS (1)
  1. REBIF [Suspect]
     Indication: PRODUCT USED FOR UNKNOWN INDICATION
     Dosage: 44 MCG, 3 IN 1 WK, SUBCUTANEOUS
     Route: 058
     Dates: start: 20060306

REACTIONS (4)
  - PYREXIA [None]
  - INJECTION SITE CELLULITIS [None]
  - RED BLOOD CELL SEDIMENTATION RATE INCREASED [None]
  - INFLUENZA LIKE ILLNESS [None]
